FAERS Safety Report 15707955 (Version 1)
Quarter: 2018Q4

REPORT INFORMATION
  Report Type: Spontaneous
  Country: US (occurrence: US)
  Receive Date: 20181211
  Receipt Date: 20181211
  Transmission Date: 20190205
  Serious: Yes (Other)
  Sender: FDA-Public Use
  Company Number: None

PATIENT
  Age: 67 Year
  Sex: Female
  Weight: 45.63 kg

DRUGS (10)
  1. IODINE RESUBLIMED [Concomitant]
  2. VITAMIN D3 [Concomitant]
     Active Substance: CHOLECALCIFEROL
  3. DEXAMTHASONE [Concomitant]
  4. CAPECITABINE. [Suspect]
     Active Substance: CAPECITABINE
     Indication: BREAST CANCER
     Dosage: ?          OTHER FREQUENCY:BID X14 D, 7 D OFF;?
     Route: 048
     Dates: start: 20180925
  5. CAPECITABINE. [Suspect]
     Active Substance: CAPECITABINE
     Indication: BREAST CANCER
     Dosage: ?          OTHER FREQUENCY:BID X14 D, 7 D OFF;?
     Route: 048
     Dates: start: 20180925
  6. UBIQUINOL [Concomitant]
     Active Substance: UBIQUINOL
  7. ADK [Concomitant]
  8. SELENIUM [Concomitant]
     Active Substance: SELENIUM
  9. EYEBRIGHT [Concomitant]
  10. LATANOPROST. [Concomitant]
     Active Substance: LATANOPROST

REACTIONS (1)
  - Gastrooesophageal reflux disease [None]

NARRATIVE: CASE EVENT DATE: 20181210
